FAERS Safety Report 14794951 (Version 1)
Quarter: 2018Q2

REPORT INFORMATION
  Report Type: Spontaneous
  Country: FR (occurrence: FR)
  Receive Date: 20180423
  Receipt Date: 20180423
  Transmission Date: 20180711
  Serious: Yes (Hospitalization)
  Sender: FDA-Public Use
  Company Number: PHHY2018FR071040

PATIENT
  Age: 75 Year
  Sex: Female
  Weight: 83 kg

DRUGS (2)
  1. AMOXICILLIN. [Suspect]
     Active Substance: AMOXICILLIN
     Indication: INFECTION
     Dosage: 6 G, UNK
     Route: 042
  2. AUGMENTIN [Suspect]
     Active Substance: AMOXICILLIN\CLAVULANATE POTASSIUM
     Indication: INFECTION
     Dosage: 3 G, UNK
     Route: 048

REACTIONS (1)
  - Fixed eruption [Recovered/Resolved]

NARRATIVE: CASE EVENT DATE: 20170818
